FAERS Safety Report 4510741-3 (Version None)
Quarter: 2004Q4

REPORT INFORMATION
  Report Type: 
  Country: None (occurrence: None)
  Receive Date: 20041122
  Receipt Date: 20041108
  Transmission Date: 20050328
  Serious: Yes (Life-Threatening, Hospitalization, Other)
  Sender: FDA-Public Use
  Company Number: 2004080726

PATIENT
  Age: 68 Year
  Sex: Female
  Weight: 45 kg

DRUGS (12)
  1. QUINAPRIL HCL [Suspect]
     Indication: HYPERTENSION
     Dosage: 20 MG (10 MG, 2 IN 1 D), ORAL
     Route: 048
     Dates: start: 20041002, end: 20041018
  2. CARDENALIN (DOXAZOSIN) [Concomitant]
  3. GALENIC/PANIPENEM/BETAMIPRON/(BETAMIPRON, PANIPENEM) [Suspect]
     Indication: SEPSIS
     Dosage: 1 GRAM (1 D), INTRAVENOUS
     Route: 042
     Dates: start: 20041006, end: 20041018
  4. VANCOMYCIN [Suspect]
     Indication: SEPSIS
     Dosage: 1 GRAM (1 D), INTRAVENOUS
     Route: 042
     Dates: start: 20041008, end: 20041001
  5. MINOCYCLINE HYDROCHLORIDE [Suspect]
     Indication: SEPSIS
     Dosage: 200 MG (100 MG, 2 IN 1)
     Dates: start: 20041006, end: 20041001
  6. AMLODIPINE BESYLATE [Concomitant]
  7. METHYLDOPA (METHTYLDOPA) [Concomitant]
  8. NICORANDIL (NICORANDIL) [Concomitant]
  9. TOCOPHERYL NICOTINATE (TOCOPHERYL NICOTINATE) [Concomitant]
  10. SENNA LEAF (SENNA LEAF) [Concomitant]
  11. CANDESARTAN CILEXETIL (CANDESARTAN CILEXETIL) [Concomitant]
  12. VOGLIBOSE (VOGLIBOSE) [Concomitant]

REACTIONS (15)
  - ALANINE AMINOTRANSFERASE DECREASED [None]
  - BACILLUS INFECTION [None]
  - BLOOD CREATININE INCREASED [None]
  - BLOOD ELECTROLYTES ABNORMAL [None]
  - BLOOD FIBRINOGEN INCREASED [None]
  - BLOOD GLUCOSE INCREASED [None]
  - BLOOD UREA INCREASED [None]
  - BLOOD URIC ACID INCREASED [None]
  - C-REACTIVE PROTEIN INCREASED [None]
  - FIBRIN DEGRADATION PRODUCTS INCREASED [None]
  - IMPLANT SITE INFECTION [None]
  - MEDICAL DEVICE COMPLICATION [None]
  - PANCYTOPENIA [None]
  - PROTHROMBIN TIME SHORTENED [None]
  - SEPSIS [None]
